FAERS Safety Report 5290912-1 (Version None)
Quarter: 2007Q2

REPORT INFORMATION
  Report Type: 
  Country: None (occurrence: None)
  Receive Date: 20070409
  Receipt Date: 20070328
  Transmission Date: 20071010
  Serious: Yes (Other)
  Sender: FDA-Public Use
  Company Number: US-PFIZER INC-2007025750

PATIENT
  Sex: Female
  Weight: 73.5 kg

DRUGS (7)
  1. LIPITOR [Suspect]
     Indication: BLOOD CHOLESTEROL INCREASED
     Dates: start: 20000101, end: 20060101
  2. NORVASC [Concomitant]
  3. PREMARIN [Concomitant]
  4. VITAMIN CAP [Concomitant]
  5. ACETYLSALICYLIC ACID SRT [Concomitant]
  6. BENICAR [Concomitant]
  7. TOPROL-XL [Concomitant]

REACTIONS (2)
  - NEUROPATHY PERIPHERAL [None]
  - SENSORY LOSS [None]
